FAERS Safety Report 13374018 (Version 1)
Quarter: 2017Q1

REPORT INFORMATION
  Report Type: Spontaneous
  Country: US (occurrence: US)
  Receive Date: 20170325
  Receipt Date: 20170325
  Transmission Date: 20170429
  Serious: Yes (Other)
  Sender: FDA-Public Use
  Company Number: None

PATIENT
  Age: 81 Year
  Sex: Female

DRUGS (1)
  1. CAPECITABINE TAB 500MG [Suspect]
     Active Substance: CAPECITABINE
     Indication: COLON CANCER

REACTIONS (4)
  - Upper gastrointestinal haemorrhage [None]
  - Fatigue [None]
  - Asthenia [None]
  - Melaena [None]

NARRATIVE: CASE EVENT DATE: 20170325
